FAERS Safety Report 5383016-0 (Version None)
Quarter: 2007Q3

REPORT INFORMATION
  Report Type: 
  Country: None (occurrence: None)
  Receive Date: 20070705
  Receipt Date: 20070627
  Transmission Date: 20080115
  Serious: Yes (Hospitalization)
  Sender: FDA-Public Use
  Company Number: MIN-00187

PATIENT
  Age: 31 Year
  Sex: Female

DRUGS (1)
  1. MINOCYCLINE HCL [Suspect]
     Indication: ACNE
     Dosage: 100 MG, QD, PO
     Route: 048

REACTIONS (15)
  - ASTHENIA [None]
  - BRAIN OEDEMA [None]
  - CYTOLYTIC HEPATITIS [None]
  - DRUG RASH WITH EOSINOPHILIA AND SYSTEMIC SYMPTOMS [None]
  - EYELID OEDEMA [None]
  - FACE OEDEMA [None]
  - HEART RATE INCREASED [None]
  - LYMPH NODE PAIN [None]
  - LYMPHADENOPATHY [None]
  - MENINGITIS [None]
  - NAUSEA [None]
  - NEUTROPHILIA [None]
  - PRURITUS GENERALISED [None]
  - RESPIRATORY RATE INCREASED [None]
  - SCLERAL DISCOLOURATION [None]
